FAERS Safety Report 5556858-6 (Version None)
Quarter: 2007Q4

REPORT INFORMATION
  Report Type: 
  Country: None (occurrence: None)
  Receive Date: 20071212
  Receipt Date: 20071212
  Transmission Date: 20080405
  Serious: Yes (Other)
  Sender: FDA-Public Use
  Company Number: None

PATIENT
  Sex: Male
  Weight: 96.6162 kg

DRUGS (1)
  1. LITHOBID [Suspect]
     Indication: METASTATIC RENAL CELL CARCINOMA
     Dosage: 300MG 4 TIMES A DAY ORALLY
     Route: 048
     Dates: start: 20071008, end: 20071016

REACTIONS (6)
  - ANOREXIA [None]
  - BLOOD CREATINE INCREASED [None]
  - BLOOD POTASSIUM INCREASED [None]
  - METASTASES TO MOUTH [None]
  - MOUTH ULCERATION [None]
  - NAUSEA [None]
